FAERS Safety Report 14746041 (Version 1)
Quarter: 2018Q2

REPORT INFORMATION
  Report Type: Spontaneous
  Country: US (occurrence: US)
  Receive Date: 20180411
  Receipt Date: 20180411
  Transmission Date: 20180711
  Serious: No
  Sender: FDA-Public Use
  Company Number: US-ALLERGAN-1729896US

PATIENT
  Sex: Female

DRUGS (2)
  1. LEVOBUNOLOL HCL, 0.25% [Suspect]
     Active Substance: LEVOBUNOLOL HYDROCHLORIDE
     Indication: GLAUCOMA
     Dosage: UNK
     Route: 065
  2. TIMOLOL MALEATE. [Suspect]
     Active Substance: TIMOLOL MALEATE
     Indication: GLAUCOMA
     Dosage: UNK
     Route: 065

REACTIONS (12)
  - Eye pruritus [Unknown]
  - Dyspnoea [Unknown]
  - Drug ineffective [Unknown]
  - Eye swelling [Unknown]
  - Rash [Unknown]
  - Abdominal discomfort [Unknown]
  - Vomiting [Unknown]
  - Rash pruritic [Unknown]
  - Nausea [Unknown]
  - Diarrhoea [Unknown]
  - Hypersensitivity [Unknown]
  - Eye irritation [Unknown]
